FAERS Safety Report 6024184-7 (Version None)
Quarter: 2008Q4

REPORT INFORMATION
  Report Type: 
  Country: None (occurrence: None)
  Receive Date: 20081224
  Receipt Date: 20081212
  Transmission Date: 20090506
  Serious: Yes (Hospitalization)
  Sender: FDA-Public Use
  Company Number: KV200800746

PATIENT
  Age: 73 Year
  Sex: Male

DRUGS (2)
  1. ISOSORBIDE MONONITRATE [Suspect]
     Indication: CARDIAC DISORDER
     Dosage: ORAL
     Route: 048
  2. MORPHINE [Concomitant]

REACTIONS (4)
  - DYSPNOEA [None]
  - FALL [None]
  - PRODUCT QUALITY ISSUE [None]
  - PULMONARY CONGESTION [None]
